FAERS Safety Report 6349585-9 (Version None)
Quarter: 2009Q3

REPORT INFORMATION
  Report Type: 
  Country: None (occurrence: None)
  Receive Date: 20090911
  Receipt Date: 20090831
  Transmission Date: 20100115
  Serious: Yes (Other)
  Sender: FDA-Public Use
  Company Number: PHHY2009JP31707

PATIENT
  Age: 63 Year
  Sex: Female

DRUGS (3)
  1. ZOMETA [Suspect]
     Indication: METASTASES TO BONE
     Dosage: 4 MG, UNK
     Route: 042
     Dates: start: 20060404, end: 20090702
  2. AROMASIN [Concomitant]
     Dosage: 20 MG, UNK
     Route: 048
     Dates: start: 20090804
  3. ARIMIDEX [Concomitant]
     Dosage: 1 MG, UNK
     Route: 048
     Dates: start: 20061030, end: 20090723

REACTIONS (2)
  - OSTEONECROSIS [None]
  - PAIN IN JAW [None]
